FAERS Safety Report 7521433-0 (Version None)
Quarter: 2011Q2

REPORT INFORMATION
  Report Type: 
  Country: None (occurrence: None)
  Receive Date: 20110531
  Receipt Date: 20110519
  Transmission Date: 20111010
  Serious: Yes (Life-Threatening)
  Sender: FDA-Public Use
  Company Number: 2011ST000131

PATIENT
  Age: 62 Year
  Sex: Female
  Weight: 75 kg

DRUGS (3)
  1. ABELCET [Suspect]
     Indication: ASPERGILLOSIS
     Dosage: X1;IV
     Route: 042
     Dates: start: 20110510, end: 20110510
  2. MEROPEN /01250501/ [Concomitant]
  3. LEVETIRACETAM [Concomitant]

REACTIONS (5)
  - PYREXIA [None]
  - RASH [None]
  - DYSPNOEA [None]
  - TACHYCARDIA [None]
  - TREMOR [None]
